FAERS Safety Report 25082337 (Version 1)
Quarter: 2025Q1

REPORT INFORMATION
  Report Type: Spontaneous
  Country: US (occurrence: US)
  Receive Date: 20250317
  Receipt Date: 20250317
  Transmission Date: 20250408
  Serious: Yes (Hospitalization, Other)
  Sender: HIKMA
  Company Number: US-HIKMA PHARMACEUTICALS USA INC.-US-H14001-24-11562

PATIENT
  Age: 75 Year
  Sex: Female
  Weight: 103.87 kg

DRUGS (4)
  1. DESVENLAFAXINE [Suspect]
     Active Substance: DESVENLAFAXINE
     Indication: Major depression
     Route: 065
     Dates: start: 202407
  2. DIAZEPAM [Concomitant]
     Active Substance: DIAZEPAM
     Indication: Panic attack
     Route: 065
  3. RITALIN [Concomitant]
     Active Substance: METHYLPHENIDATE HYDROCHLORIDE
     Indication: Disturbance in attention
     Route: 065
  4. SPRAVATO [Concomitant]
     Active Substance: ESKETAMINE
     Indication: Major depression
     Route: 065

REACTIONS (2)
  - Malaise [Unknown]
  - Serotonin syndrome [Unknown]
